FAERS Safety Report 6153735-7 (Version None)
Quarter: 2009Q2

REPORT INFORMATION
  Report Type: 
  Country: None (occurrence: None)
  Receive Date: 20090410
  Receipt Date: 20090330
  Transmission Date: 20091009
  Serious: Yes (Death)
  Sender: FDA-Public Use
  Company Number: 2009AP001242

PATIENT
  Age: 53 Year
  Sex: Male

DRUGS (6)
  1. ZOLPIDEM TARTRATE [Suspect]
  2. TRAMADOL HYDROCHLORIDE [Suspect]
  3. CHLORPROMAZINE HCL [Suspect]
  4. AMITRIPTYLINE HYDROCHLORIDE [Suspect]
  5. HYDROCODONE BITARTRATE [Suspect]
  6. OLANZAPINE [Suspect]

REACTIONS (8)
  - ACCIDENTAL DEATH [None]
  - DILATATION VENTRICULAR [None]
  - DRUG TOXICITY [None]
  - EMPHYSEMA [None]
  - HEPATIC STEATOSIS [None]
  - HYPERTENSIVE HEART DISEASE [None]
  - NEPHROSCLEROSIS [None]
  - PLEURAL ADHESION [None]
